FAERS Safety Report 9702935 (Version 1)
Quarter: 2013Q4

REPORT INFORMATION
  Report Type: Spontaneous
  Country: US (occurrence: US)
  Receive Date: 20131121
  Receipt Date: 20131121
  Transmission Date: 20140711
  Serious: Yes (Death)
  Sender: FDA-Public Use
  Company Number: PHEH2013US024365

PATIENT
  Sex: Female

DRUGS (3)
  1. TOBI [Suspect]
     Indication: TRACHEITIS
     Dosage: 300 UKN, BID
     Dates: start: 20130315
  2. TOBI [Suspect]
     Indication: BRONCHIECTASIS
  3. TOBI [Suspect]
     Indication: QUADRIPLEGIA

REACTIONS (1)
  - Death [Fatal]
